FAERS Safety Report 20836467 (Version 1)
Quarter: 2022Q2

REPORT INFORMATION
  Report Type: 
  Country: None (occurrence: None)
  Receive Date: 20220517
  Receipt Date: 20220517
  Transmission Date: 20220721
  Serious: No
  Sender: FDA-Public Use
  Company Number: US-ROCHE-3096505

PATIENT

DRUGS (10)
  1. RITUXAN [Suspect]
     Active Substance: RITUXIMAB
  2. ASPIRIN [Concomitant]
     Active Substance: ASPIRIN
  3. ATORVASTATIN [Concomitant]
     Active Substance: ATORVASTATIN
  4. DUTASTERIDE [Concomitant]
     Active Substance: DUTASTERIDE
  5. FOLIC ACID [Concomitant]
     Active Substance: FOLIC ACID
  6. METOPROLOL [Concomitant]
     Active Substance: METOPROLOL
  7. PREDNISONE [Concomitant]
     Active Substance: PREDNISONE
  8. TYLENOL [Concomitant]
     Active Substance: ACETAMINOPHEN
  9. VITAMIN C [Concomitant]
     Active Substance: ASCORBIC ACID
  10. VITAMIN E [Concomitant]
     Active Substance: .ALPHA.-TOCOPHEROL

REACTIONS (5)
  - Arthralgia [None]
  - Skin cancer [None]
  - Anxiety [None]
  - Hypersomnia [None]
  - Decreased appetite [None]
